FAERS Safety Report 18658653 (Version 1)
Quarter: 2020Q4

REPORT INFORMATION
  Report Type: Spontaneous
  Country: US (occurrence: US)
  Receive Date: 20201223
  Receipt Date: 20201223
  Transmission Date: 20210114
  Serious: Yes (Other)
  Sender: FDA-Public Use
  Company Number: US-INDIVIOR US-INDV-127645-2020

PATIENT
  Age: 27 Year
  Sex: Female

DRUGS (44)
  1. BUPRENORPHINE/NALOXONE 2 MG FILM [Suspect]
     Active Substance: BUPRENORPHINE\NALOXONE
     Dosage: 0.25MG + 0.5MG, Q8H AFTER FIRST 3 DOSES (DAY 11)
     Route: 060
  2. CYCLOPHOSPHAMIDE. [Suspect]
     Active Substance: CYCLOPHOSPHAMIDE
     Indication: CHEMOTHERAPY
     Dosage: UNK
     Route: 065
  3. MORPHINE INJECTION [Concomitant]
     Active Substance: MORPHINE
     Dosage: 30.25 MG ( DAY 10)
     Route: 042
  4. MORPHINE [Concomitant]
     Active Substance: MORPHINE
     Dosage: 128.5 MG (DAY 10)
     Route: 048
  5. ACETAMINOPHEN. [Concomitant]
     Active Substance: ACETAMINOPHEN
     Indication: FACIAL PAIN
     Dosage: UNK
     Route: 065
  6. DIPHENHYDRAMINE. [Concomitant]
     Active Substance: DIPHENHYDRAMINE
     Indication: FACIAL PAIN
     Dosage: UNK
     Route: 065
  7. BUPRENORPHINE/NALOXONE 2 MG FILM [Suspect]
     Active Substance: BUPRENORPHINE\NALOXONE
     Dosage: 0.5 MILLIGRAM, TID (AS NEEDED)
     Route: 060
  8. BUPRENORPHINE/NALOXONE 2 MG FILM [Suspect]
     Active Substance: BUPRENORPHINE\NALOXONE
     Dosage: 2 MILLIGRAM, Q8H
     Route: 060
  9. DOXORUBICIN [Suspect]
     Active Substance: DOXORUBICIN
     Indication: CHEMOTHERAPY
     Dosage: UNK
     Route: 065
  10. VINCRISTINE [Suspect]
     Active Substance: VINCRISTINE
     Indication: CHEMOTHERAPY
     Dosage: UNK
     Route: 065
  11. OXYCODONE [Concomitant]
     Active Substance: OXYCODONE
     Dosage: 60 MG (DAY 7)
     Route: 048
  12. MORPHINE INJECTION [Concomitant]
     Active Substance: MORPHINE
     Dosage: 9.75 MG (DAY 11)
     Route: 042
  13. MORPHINE [Concomitant]
     Active Substance: MORPHINE
     Dosage: 90 MG (DAY 7)
     Route: 048
  14. OXYMETAZOLINE [Concomitant]
     Active Substance: OXYMETAZOLINE
     Indication: PRODUCT USED FOR UNKNOWN INDICATION
     Dosage: UNK
     Route: 045
  15. HYDROXYZINE [HYDROXYZINE HYDROCHLORIDE] [Concomitant]
     Active Substance: HYDROXYZINE HYDROCHLORIDE
     Indication: INSOMNIA
     Dosage: UNK, PRN
     Route: 065
  16. POLYETHYLENE GLYCOL [MACROGOL] [Concomitant]
     Active Substance: POLYETHYLENE GLYCOLS
     Indication: CONSTIPATION
     Dosage: UNK
     Route: 065
  17. SENNA ALEXANDRINA [Concomitant]
     Active Substance: SENNA LEAF
     Indication: CONSTIPATION
     Dosage: UNK
     Route: 065
  18. HYDROMORPHONE [Concomitant]
     Active Substance: HYDROMORPHONE
     Indication: BREAKTHROUGH PAIN
     Dosage: UNK
     Route: 065
  19. MORPHINE INJECTION [Concomitant]
     Active Substance: MORPHINE
     Indication: CANCER PAIN
     Dosage: 4MG + 7.67 MG (DAY 8)
     Route: 042
  20. MORPHINE [Concomitant]
     Active Substance: MORPHINE
     Dosage: 45 MG (DAY 4)
     Route: 048
  21. MORPHINE [Concomitant]
     Active Substance: MORPHINE
     Dosage: 110 MG (DAY 8)
     Route: 048
  22. DEXAMETHASONE. [Concomitant]
     Active Substance: DEXAMETHASONE
     Indication: PRODUCT USED FOR UNKNOWN INDICATION
     Dosage: UNK
     Route: 065
  23. HYDROXYZINE [HYDROXYZINE HYDROCHLORIDE] [Concomitant]
     Active Substance: HYDROXYZINE HYDROCHLORIDE
     Indication: ANXIETY
  24. HYDROMORPHONE [Concomitant]
     Active Substance: HYDROMORPHONE
     Dosage: UNK, PRN
     Route: 048
  25. BUPRENORPHINE/NALOXONE 2 MG FILM [Suspect]
     Active Substance: BUPRENORPHINE\NALOXONE
     Dosage: 1 MILLIGRAM, Q8H (SELF-TITRATING)
     Route: 060
  26. OXYCODONE [Concomitant]
     Active Substance: OXYCODONE
     Dosage: 50 MG, PRN Q4H (DAY 6)
     Route: 048
  27. OXYCODONE [Concomitant]
     Active Substance: OXYCODONE
     Dosage: 50 MG (DAY 8)
     Route: 048
  28. MORPHINE [Concomitant]
     Active Substance: MORPHINE
     Indication: CANCER PAIN
     Dosage: 7.5 MG (DAY 1)
     Route: 048
  29. MORPHINE [Concomitant]
     Active Substance: MORPHINE
     Dosage: 112.5 MG (DAY 13 AND 14)
     Route: 048
  30. BUPRENORPHINE/NALOXONE 2 MG FILM [Suspect]
     Active Substance: BUPRENORPHINE\NALOXONE
     Dosage: 2.5MG (DAY 12)
     Route: 060
  31. MORPHINE [Concomitant]
     Active Substance: MORPHINE
     Dosage: 108.66 MG (DAY 9)
     Route: 048
  32. MORPHINE INJECTION [Concomitant]
     Active Substance: MORPHINE
     Dosage: 36.22 MG (DAY 9)
     Route: 042
  33. MORPHINE [Concomitant]
     Active Substance: MORPHINE
     Dosage: 37.5 MG (DAY 2 AND 3)
     Route: 048
  34. BUPRENORPHINE/NALOXONE 2 MG FILM [Suspect]
     Active Substance: BUPRENORPHINE\NALOXONE
     Indication: CANCER PAIN
     Dosage: 0.25 MG, Q6H FOR TWO DOSES (DAY 10)
     Route: 060
  35. BUPRENORPHINE/NALOXONE 2 MG FILM [Suspect]
     Active Substance: BUPRENORPHINE\NALOXONE
     Dosage: 0.5 MILLIGRAM, TID (DAY 13 AND 14)
     Route: 060
  36. OXYCODONE [Concomitant]
     Active Substance: OXYCODONE
     Dosage: 30MG (DAY 4)
     Route: 048
  37. OXYCODONE [Concomitant]
     Active Substance: OXYCODONE
     Dosage: 25 MG (DAY 5)
     Route: 048
  38. OXYCODONE [Concomitant]
     Active Substance: OXYCODONE
     Indication: CANCER PAIN
     Dosage: 5MG, PRN Q4H (DAY 1)
     Route: 048
  39. OXYCODONE [Concomitant]
     Active Substance: OXYCODONE
     Dosage: 25 MG (DAY 2 AND 3)
     Route: 048
  40. MORPHINE [Concomitant]
     Active Substance: MORPHINE
     Dosage: 37.5 MG (DAY 5)
     Route: 048
  41. MORPHINE [Concomitant]
     Active Substance: MORPHINE
     Dosage: 75 MG (DAY 6)
     Route: 048
  42. MORPHINE [Concomitant]
     Active Substance: MORPHINE
     Dosage: 123 MG (DAY 11)
     Route: 048
  43. MORPHINE [Concomitant]
     Active Substance: MORPHINE
     Dosage: 187.5 MG (DAY 12)
     Route: 048
  44. ESCITALOPRAM [Concomitant]
     Active Substance: ESCITALOPRAM OXALATE
     Indication: PRODUCT USED FOR UNKNOWN INDICATION
     Dosage: UNK
     Route: 065

REACTIONS (10)
  - Sepsis [Unknown]
  - Oesophagitis [Unknown]
  - Wrong technique in product usage process [Recovered/Resolved]
  - Pain [Unknown]
  - Inappropriate schedule of product administration [Recovered/Resolved]
  - Intentional product use issue [Recovered/Resolved]
  - Off label use [Recovered/Resolved]
  - Odynophagia [Unknown]
  - Premature delivery [Recovered/Resolved]
  - Maternal exposure during pregnancy [Recovered/Resolved]
